FAERS Safety Report 16232709 (Version 3)
Quarter: 2022Q1

REPORT INFORMATION
  Report Type: Spontaneous
  Country: CA (occurrence: CA)
  Receive Date: 20190424
  Receipt Date: 20220307
  Transmission Date: 20220423
  Serious: Yes (Other)
  Sender: FDA-Public Use
  Company Number: CA-009507513-1904CAN009582

PATIENT
  Sex: Female

DRUGS (4)
  1. KEYTRUDA [Suspect]
     Active Substance: PEMBROLIZUMAB
     Indication: Alveolar soft part sarcoma metastatic
     Dosage: UNK
     Route: 065
     Dates: end: 2019
  2. INLYTA [Suspect]
     Active Substance: AXITINIB
     Indication: Alveolar soft part sarcoma metastatic
     Dosage: 5 MILLIGRAM, 2 EVERY 1 DAY(S) FOR 7 DAYS
     Route: 048
     Dates: start: 2018, end: 2019
  3. INLYTA [Suspect]
     Active Substance: AXITINIB
     Dosage: 5 MILLIGRAM, 2 EVERY 1 DAY(S)
     Route: 048
  4. PAZOPANIB [Suspect]
     Active Substance: PAZOPANIB
     Indication: Alveolar soft part sarcoma metastatic
     Dosage: UNK
     Route: 065
     Dates: start: 201609

REACTIONS (3)
  - Alveolar soft part sarcoma metastatic [Unknown]
  - Malignant neoplasm progression [Unknown]
  - Treatment failure [Unknown]
